FAERS Safety Report 9950652 (Version 2)
Quarter: 2014Q1

REPORT INFORMATION
  Report Type: Report from Study
  Country: US (occurrence: US)
  Receive Date: 20140304
  Receipt Date: 20140304
  Transmission Date: 20141002
  Serious: Yes (Hospitalization)
  Sender: FDA-Public Use
  Company Number: US-ABBVIE-13P-163-1047606-00

PATIENT
  Age: 58 Year
  Sex: Female
  Weight: 113.5 kg

DRUGS (8)
  1. HUMIRA [Suspect]
     Indication: PSORIASIS
     Dosage: AS DIRECTED
     Route: 058
     Dates: start: 200806
  2. XANAX [Concomitant]
     Indication: ANXIETY
  3. CELEXA [Concomitant]
     Indication: DEPRESSION
  4. METOPROLOL [Concomitant]
     Indication: HYPERTENSION
  5. GLYBURIDE [Concomitant]
     Indication: DIABETES MELLITUS
  6. METFORMIN [Concomitant]
     Indication: DIABETES MELLITUS
  7. SEROQUEL [Concomitant]
     Indication: BIPOLAR DISORDER
  8. MULTIVITAMIN [Concomitant]
     Indication: VITAMIN SUPPLEMENTATION

REACTIONS (1)
  - Arthritis [Recovered/Resolved]
